FAERS Safety Report 6231936-7 (Version None)
Quarter: 2009Q2

REPORT INFORMATION
  Report Type: 
  Country: None (occurrence: None)
  Receive Date: 20090616
  Receipt Date: 20090608
  Transmission Date: 20091009
  Serious: Yes (Other)
  Sender: FDA-Public Use
  Company Number: US-ELI_LILLY_AND_COMPANY-US200906002173

PATIENT
  Sex: Male

DRUGS (7)
  1. HUMATROPE [Suspect]
     Indication: GROWTH HORMONE DEFICIENCY
     Dosage: 0.4 MG, DAILY (1/D)
     Dates: start: 20090501, end: 20090608
  2. PREVACID [Concomitant]
     Dosage: UNK, UNKNOWN
  3. NITROGLYCERIN [Concomitant]
     Dosage: UNK, UNKNOWN
  4. MIRALAX [Concomitant]
     Dosage: UNK, UNKNOWN
  5. GLYCERIN SUPPOSITORIES USP 27 [Concomitant]
     Dosage: UNK, UNKNOWN
  6. OXYGEN [Concomitant]
     Dosage: UNK, UNKNOWN
  7. CARBON DIOXIDE [Concomitant]
     Dosage: UNK, UNKNOWN

REACTIONS (1)
  - CONVULSION [None]
